FAERS Safety Report 6902135-8 (Version None)
Quarter: 2010Q3

REPORT INFORMATION
  Report Type: 
  Country: None (occurrence: None)
  Receive Date: 20100803
  Receipt Date: 20100730
  Transmission Date: 20110219
  Serious: Yes (Death)
  Sender: FDA-Public Use
  Company Number: US-GILEAD-2010-0030261

PATIENT
  Sex: Male

DRUGS (15)
  1. LETAIRIS [Suspect]
     Indication: PULMONARY ARTERIAL HYPERTENSION
     Route: 048
     Dates: start: 20091101, end: 20100624
  2. LETAIRIS [Suspect]
     Route: 048
     Dates: start: 20080801, end: 20090401
  3. LASIX [Concomitant]
  4. SPIRIVA [Concomitant]
  5. TYVASO [Concomitant]
  6. PLAVIX [Concomitant]
  7. ASPIRIN [Concomitant]
  8. ADCIRCA [Concomitant]
  9. MAXAIR [Concomitant]
  10. ASCORBIC ACID [Concomitant]
  11. LIPITOR [Concomitant]
  12. KLOR-CON [Concomitant]
  13. LEVOTHYROXINE SODIUM [Concomitant]
  14. ALLOPURINOL [Concomitant]
  15. NEXIUM [Concomitant]

REACTIONS (1)
  - RIGHT VENTRICULAR FAILURE [None]
